FAERS Safety Report 5892176-4 (Version None)
Quarter: 2008Q3

REPORT INFORMATION
  Report Type: 
  Country: None (occurrence: None)
  Receive Date: 20080918
  Receipt Date: 20080903
  Transmission Date: 20090109
  Serious: No
  Sender: FDA-Public Use
  Company Number: 1-16604687

PATIENT
  Age: 13 Year
  Sex: Male

DRUGS (1)
  1. HYDROCORTISONE [Suspect]
     Indication: DERMATITIS ATOPIC
     Dosage: TO ARMS AND FACE, CUTANEOUS
     Route: 003

REACTIONS (4)
  - CATARACT [None]
  - ENDOPHTHALMITIS [None]
  - EYE INFECTION STAPHYLOCOCCAL [None]
  - INTRAOCULAR LENS IMPLANT [None]
